FAERS Safety Report 19100263 (Version 4)
Quarter: 2021Q3

REPORT INFORMATION
  Report Type: Spontaneous
  Country: JP (occurrence: JP)
  Receive Date: 20210407
  Receipt Date: 20210708
  Transmission Date: 20211014
  Serious: Yes (Other)
  Sender: FDA-Public Use
  Company Number: JP-AMGEN-JPNSP2021050248

PATIENT
  Age: 88 Year
  Sex: Female

DRUGS (5)
  1. EVENITY [Suspect]
     Active Substance: ROMOSOZUMAB-AQQG
     Indication: OSTEOARTHRITIS
     Dosage: 210 MILLIGRAM
     Route: 058
     Dates: start: 20210428
  2. EVENITY [Suspect]
     Active Substance: ROMOSOZUMAB-AQQG
     Indication: OSTEOPOROSIS
     Dosage: 210 MILLIGRAM
     Route: 058
     Dates: start: 20200915, end: 20210304
  3. EDIROL [Concomitant]
     Active Substance: ELDECALCITOL
     Indication: OSTEOARTHRITIS
  4. LOXONIN [Concomitant]
     Active Substance: LOXOPROFEN SODIUM
     Indication: BACK PAIN
     Dosage: UNK
     Dates: start: 20200808
  5. EDIROL [Concomitant]
     Active Substance: ELDECALCITOL
     Indication: OSTEOPOROSIS
     Dosage: 1 DOSAGE FORM, QD
     Dates: start: 20170328

REACTIONS (1)
  - Angina pectoris [Recovering/Resolving]

NARRATIVE: CASE EVENT DATE: 20201030
